FAERS Safety Report 15089913 (Version 2)
Quarter: 2018Q3

REPORT INFORMATION
  Report Type: Report from Study
  Country: EC (occurrence: EC)
  Receive Date: 20180629
  Receipt Date: 20180710
  Transmission Date: 20181010
  Serious: Yes (Death)
  Sender: FDA-Public Use
  Company Number: PHHY2018EC033282

PATIENT
  Age: 60 Year
  Sex: Female

DRUGS (1)
  1. ENTRESTO [Suspect]
     Active Substance: SACUBITRIL\VALSARTAN
     Indication: CARDIAC FAILURE
     Dosage: 50 MG, BID
     Route: 048
     Dates: start: 20180418

REACTIONS (4)
  - Hepatomegaly [Fatal]
  - Cardio-respiratory arrest [Fatal]
  - Lung disorder [Fatal]
  - Abdominal distension [Unknown]

NARRATIVE: CASE EVENT DATE: 201805
